FAERS Safety Report 7594865-2 (Version None)
Quarter: 2011Q3

REPORT INFORMATION
  Report Type: 
  Country: None (occurrence: None)
  Receive Date: 20110707
  Receipt Date: 20110701
  Transmission Date: 20111222
  Serious: Yes (Hospitalization)
  Sender: FDA-Public Use
  Company Number: JP-BRISTOL-MYERS SQUIBB COMPANY-15853260

PATIENT
  Age: 87 Year
  Sex: Male

DRUGS (5)
  1. ENALAPRIL MALEATE [Concomitant]
     Route: 048
  2. BARACLUDE [Suspect]
     Indication: HEPATITIS B
     Dosage: INTERRUPTED ON 23-JUN-2011
     Route: 048
     Dates: start: 20110522
  3. ASPIRIN [Concomitant]
     Route: 048
  4. URIEF [Concomitant]
     Route: 048
  5. EVIPROSTAT [Concomitant]
     Route: 048

REACTIONS (4)
  - DECREASED APPETITE [None]
  - CONSTIPATION [None]
  - OVERDOSE [None]
  - ABDOMINAL PAIN [None]
